FAERS Safety Report 18586672 (Version 1)
Quarter: 2020Q4

REPORT INFORMATION
  Report Type: Spontaneous
  Country: US (occurrence: US)
  Receive Date: 20201203
  Receipt Date: 20201203
  Transmission Date: 20210114
  Serious: Yes (Hospitalization)
  Sender: FDA-Public Use
  Company Number: None

PATIENT
  Age: 63 Year
  Sex: Male
  Weight: 79.5 kg

DRUGS (1)
  1. CISPLATIN. [Suspect]
     Active Substance: CISPLATIN
     Dates: end: 20201103

REACTIONS (7)
  - Hypophagia [None]
  - Fall [None]
  - Head injury [None]
  - Neck injury [None]
  - COVID-19 pneumonia [None]
  - Staphylococcus test positive [None]
  - Septic pulmonary embolism [None]

NARRATIVE: CASE EVENT DATE: 20201111
